FAERS Safety Report 4328506-4 (Version None)
Quarter: 2004Q1

REPORT INFORMATION
  Report Type: 
  Country: None (occurrence: None)
  Receive Date: 20040331
  Receipt Date: 20030930
  Transmission Date: 20041129
  Serious: Yes (Death, Hospitalization)
  Sender: FDA-Public Use
  Company Number: US-MERCK-0310USA00329

PATIENT
  Age: 86 Year
  Sex: Female

DRUGS (19)
  1. ALBUTEROL [Concomitant]
     Indication: DYSPNOEA
     Route: 065
  2. COMBIVENT [Concomitant]
     Indication: DYSPNOEA
     Route: 065
  3. FOSAMAX [Concomitant]
     Route: 048
  4. ASPIRIN [Concomitant]
     Route: 048
  5. PLAVIX [Concomitant]
     Route: 048
  6. FLOVENT [Concomitant]
     Route: 065
  7. ADVAIR DISKUS 100/50 [Concomitant]
     Route: 055
  8. HYDRALAZINE [Concomitant]
     Route: 048
  9. ATROVENT [Concomitant]
     Indication: DYSPNOEA
     Route: 065
  10. LACTULOSE [Concomitant]
     Indication: CONSTIPATION
     Route: 048
  11. SYNTHROID [Concomitant]
     Route: 048
  12. ATIVAN [Concomitant]
     Route: 065
     Dates: end: 20030222
  13. OXYGEN [Concomitant]
     Route: 055
  14. ALTACE [Concomitant]
     Route: 048
  15. ZOLOFT [Concomitant]
     Route: 048
     Dates: end: 20030101
  16. ZOCOR [Suspect]
     Route: 048
     Dates: start: 20000414, end: 20020528
  17. ZOCOR [Suspect]
     Route: 048
     Dates: start: 20020529, end: 20020624
  18. ZOCOR [Suspect]
     Route: 048
     Dates: start: 20020712, end: 20020911
  19. ZOCOR [Suspect]
     Route: 048
     Dates: start: 20020901, end: 20030201

REACTIONS (23)
  - AMNESIA [None]
  - AORTIC VALVE SCLEROSIS [None]
  - BLOOD PRESSURE SYSTOLIC DECREASED [None]
  - DEATH [None]
  - DECUBITUS ULCER [None]
  - DIARRHOEA [None]
  - DILATATION ATRIAL [None]
  - DYSARTHRIA [None]
  - EMPHYSEMA [None]
  - FAILURE TO THRIVE [None]
  - HALLUCINATION, VISUAL [None]
  - HYPERSOMNIA [None]
  - MITRAL VALVE INCOMPETENCE [None]
  - OBSTRUCTIVE CHRONIC BRONCHITIS WITH ACUTE EXACERBATION [None]
  - ORAL CANDIDIASIS [None]
  - OROPHARYNGEAL CANDIDIASIS [None]
  - PARANOIA [None]
  - PULMONARY HYPERTENSION [None]
  - RHABDOMYOLYSIS [None]
  - TRICUSPID VALVE INCOMPETENCE [None]
  - URINARY TRACT INFECTION [None]
  - UROSEPSIS [None]
  - VENTRICULAR HYPERTROPHY [None]
